FAERS Safety Report 9790250 (Version 2)
Quarter: 2014Q1

REPORT INFORMATION
  Report Type: Spontaneous
  Country: JP (occurrence: JP)
  Receive Date: 20131231
  Receipt Date: 20140115
  Transmission Date: 20141002
  Serious: Yes (Other)
  Sender: FDA-Public Use
  Company Number: JP-PFIZER INC-2013369242

PATIENT
  Age: 82 Year
  Sex: Male

DRUGS (5)
  1. SUNITINIB MALATE [Suspect]
     Indication: GASTROINTESTINAL STROMAL TUMOUR
     Dosage: 50 MG/DAY CYCLIC (4 WEEKS ON, 2 WEEKS OFF)
     Dates: start: 201104
  2. SUNITINIB MALATE [Suspect]
     Dosage: 37.5 MG/DAY CYCLIC (2 WEEKS ON, 1 WEEK OFF)
  3. SUNITINIB MALATE [Suspect]
     Dosage: 25 MG/DAY CYCLIC (2 WEEKS ON, 1 WEEK OFF)
  4. SUNITINIB MALATE [Suspect]
     Dosage: 12.5 MG, ALTERNATE DAY
  5. SUNITINIB MALATE [Suspect]
     Dosage: 12.5 MG, DAILY

REACTIONS (4)
  - Pemphigoid [Unknown]
  - Decreased appetite [Unknown]
  - Platelet count decreased [Unknown]
  - Diarrhoea [Unknown]
